FAERS Safety Report 10091705 (Version 1)
Quarter: 2014Q2

REPORT INFORMATION
  Report Type: Spontaneous
  Country: US (occurrence: US)
  Receive Date: 20140421
  Receipt Date: 20140421
  Transmission Date: 20141212
  Serious: No
  Sender: FDA-Public Use
  Company Number: US-PURDUE-USA-2014-0111539

PATIENT
  Age: 85 Year
  Sex: Male

DRUGS (1)
  1. OXYCODONE HCL IR CAPSULES [Suspect]
     Indication: ARTHRALGIA
     Dosage: 5 MG, Q8H
     Route: 048
     Dates: start: 2012

REACTIONS (1)
  - Insomnia [Not Recovered/Not Resolved]
